FAERS Safety Report 4349906-2 (Version None)
Quarter: 2004Q2

REPORT INFORMATION
  Report Type: 
  Country: None (occurrence: None)
  Receive Date: 20040428
  Receipt Date: 20040428
  Transmission Date: 20050107
  Serious: Yes (Death)
  Sender: FDA-Public Use
  Company Number: None

PATIENT
  Age: 76 Year
  Sex: Male

DRUGS (4)
  1. TOBRAMYCIN [Suspect]
     Indication: ACINETOBACTER INFECTION
     Dosage: 7MG/KG Q36H INTRAVENOUS
     Route: 042
     Dates: start: 20040229, end: 20040307
  2. TOBRAMYCIN [Suspect]
     Indication: PNEUMONIA
     Dosage: 7MG/KG Q36H INTRAVENOUS
     Route: 042
     Dates: start: 20040229, end: 20040307
  3. VANCOMYCIN [Concomitant]
  4. CEFOTAXIME [Concomitant]

REACTIONS (2)
  - BLOOD CREATININE INCREASED [None]
  - DRUG LEVEL INCREASED [None]
